FAERS Safety Report 18862445 (Version 4)
Quarter: 2022Q3

REPORT INFORMATION
  Report Type: Spontaneous
  Country: US (occurrence: US)
  Receive Date: 20210209
  Receipt Date: 20220923
  Transmission Date: 20221027
  Serious: No
  Sender: FDA-Public Use
  Company Number: US-SA-SAC20210323001526

PATIENT
  Age: 7 Year
  Sex: Female

DRUGS (7)
  1. DUPIXENT [Suspect]
     Active Substance: DUPILUMAB
     Indication: Dermatitis atopic
     Dosage: 300 MG,Q4W
     Route: 058
     Dates: start: 20200728
  2. DUPIXENT [Suspect]
     Active Substance: DUPILUMAB
     Dosage: 300 MG, QOW
     Route: 058
     Dates: start: 202103
  3. CLOBETASOL [Concomitant]
     Active Substance: CLOBETASOL
     Indication: Dermatitis atopic
     Dosage: BID TO FECT PRN
  4. MUPIROCIN [Concomitant]
     Active Substance: MUPIROCIN
     Indication: Dermatitis atopic
     Route: 061
  5. MUPIROCIN [Concomitant]
     Active Substance: MUPIROCIN
     Indication: Infection
  6. TACROLIMUS [Concomitant]
     Active Substance: TACROLIMUS
     Indication: Dermatitis atopic
     Dosage: BID PRN
  7. TRIAMCINOLONE [Concomitant]
     Active Substance: TRIAMCINOLONE
     Indication: Dermatitis atopic
     Dosage: BID PRN

REACTIONS (10)
  - Headache [Not Recovered/Not Resolved]
  - Abdominal pain upper [Unknown]
  - Injection site vesicles [Unknown]
  - Constipation [Unknown]
  - Headache [Unknown]
  - Eczema [Unknown]
  - Product use issue [Unknown]
  - Injection site pain [Recovered/Resolved]
  - Injection site swelling [Recovered/Resolved]
  - Injection site pain [Unknown]

NARRATIVE: CASE EVENT DATE: 20210201
